FAERS Safety Report 26022577 (Version 1)
Quarter: 2025Q4

REPORT INFORMATION
  Report Type: Other
  Country: US (occurrence: US)
  Receive Date: 20251110
  Receipt Date: 20251110
  Transmission Date: 20260118
  Serious: Yes (Other)
  Sender: FAGRON COMPOUNDING SERVICES D/B/A FAGRON STERILE SERVICES, WICHITA, KS
  Company Number: US-Fagron Sterile Services-2188230

PATIENT

DRUGS (1)
  1. BUPIVACAINE\FENTANYL CITRATE [Suspect]
     Active Substance: BUPIVACAINE\FENTANYL CITRATE

REACTIONS (2)
  - Hypotension [Unknown]
  - Hypothermia [Unknown]
